FAERS Safety Report 17250533 (Version 1)
Quarter: 2020Q1

REPORT INFORMATION
  Report Type: Spontaneous
  Country: NO (occurrence: NO)
  Receive Date: 20200109
  Receipt Date: 20200109
  Transmission Date: 20200409
  Serious: Yes (Hospitalization)
  Sender: FDA-Public Use
  Company Number: NO-ROCHE-2515346

PATIENT
  Age: 38 Year
  Sex: Male

DRUGS (3)
  1. ROACTEMRA [Suspect]
     Active Substance: TOCILIZUMAB
     Indication: JUVENILE IDIOPATHIC ARTHRITIS
     Dosage: ROACTEMRA INFUSIONS WAS STARTED IN SEPTEMBER 2013. SWITCHED TO SUBCUTANEOUS INJECTIONS IN OCTOBER 20
     Route: 058
     Dates: start: 201410, end: 201909
  2. METEX XR [Concomitant]
     Indication: JUVENILE IDIOPATHIC ARTHRITIS
     Route: 058
     Dates: start: 2013, end: 201909
  3. ROACTEMRA [Suspect]
     Active Substance: TOCILIZUMAB
     Indication: JUVENILE IDIOPATHIC ARTHRITIS
     Route: 042
     Dates: start: 201309

REACTIONS (1)
  - Testis cancer [Recovering/Resolving]

NARRATIVE: CASE EVENT DATE: 201909
